FAERS Safety Report 17607657 (Version 1)
Quarter: 2020Q1

REPORT INFORMATION
  Report Type: Spontaneous
  Country: KR (occurrence: KR)
  Receive Date: 20200331
  Receipt Date: 20200331
  Transmission Date: 20200409
  Serious: Yes (Hospitalization, Other)
  Sender: FDA-Public Use
  Company Number: KR-PFIZER INC-2019522555

PATIENT
  Age: 82 Year
  Sex: Male
  Weight: 63 kg

DRUGS (4)
  1. MUCOSTA [Concomitant]
     Active Substance: REBAMIPIDE
     Dosage: 3 DF(1 DF=100 MG), 3X/DAY
     Dates: start: 20190617
  2. CELEBREX [Suspect]
     Active Substance: CELECOXIB
     Dosage: 200 MG, 2X/DAY
     Route: 048
     Dates: start: 20190617
  3. FAMVICS [Concomitant]
     Dosage: 3 DF(1 DF=250 MG), EVERY 8 HRS
     Dates: start: 20190617
  4. IRCODON [Concomitant]
     Active Substance: OXYCODONE HYDROCHLORIDE
     Dosage: 3 DF (1 DF=5 MG), UNK
     Dates: start: 20190617, end: 20190619

REACTIONS (9)
  - Hypertension [Unknown]
  - Dizziness [Not Recovered/Not Resolved]
  - Haemoptysis [Unknown]
  - Lipase increased [Unknown]
  - Chest pain [Unknown]
  - Nausea [Unknown]
  - Cold sweat [Unknown]
  - Dyspepsia [Unknown]
  - Vomiting [Unknown]

NARRATIVE: CASE EVENT DATE: 20190619
